FAERS Safety Report 7016343-1 (Version None)
Quarter: 2010Q3

REPORT INFORMATION
  Report Type: 
  Country: None (occurrence: None)
  Receive Date: 20100927
  Receipt Date: 20100915
  Transmission Date: 20110219
  Serious: Yes (Life-Threatening, Hospitalization)
  Sender: FDA-Public Use
  Company Number: NL-PFIZER INC-2010116338

PATIENT
  Age: 53 Year
  Sex: Male
  Weight: 95 kg

DRUGS (3)
  1. IDARUBICIN HCL [Suspect]
     Dosage: UNK
     Dates: start: 20010323
  2. ALDESLEUKIN [Suspect]
  3. CYCLOPHOSPHAMIDE [Suspect]
     Dosage: UNK
     Dates: start: 20010401

REACTIONS (2)
  - DEVICE RELATED INFECTION [None]
  - NEUTROPENIA [None]
